FAERS Safety Report 8158844-9 (Version None)
Quarter: 2012Q1

REPORT INFORMATION
  Report Type: 
  Country: None (occurrence: None)
  Receive Date: 20120223
  Receipt Date: 20120209
  Transmission Date: 20120608
  Serious: Yes (Death)
  Sender: FDA-Public Use
  Company Number: MA-CELGENEUS-110-20785-12021135

PATIENT
  Age: 73 Year
  Sex: Male

DRUGS (4)
  1. THALIDOMIDE [Suspect]
     Indication: MULTIPLE MYELOMA
     Route: 048
  2. ERYTHROPOETIN [Concomitant]
     Route: 065
  3. DEXAMETHASONE [Concomitant]
     Indication: MULTIPLE MYELOMA
     Route: 065
  4. ANTIHYPERTENSIVES [Concomitant]
     Route: 065

REACTIONS (1)
  - HEPATITIS FULMINANT [None]
